FAERS Safety Report 6580591-5 (Version None)
Quarter: 2010Q1

REPORT INFORMATION
  Report Type: 
  Country: None (occurrence: None)
  Receive Date: 20100212
  Receipt Date: 20100204
  Transmission Date: 20100710
  Serious: Yes (Hospitalization)
  Sender: FDA-Public Use
  Company Number: JP-BAXTER-2008BH001881

PATIENT
  Age: 58 Year
  Sex: Male

DRUGS (3)
  1. EXTRANEAL [Suspect]
     Indication: RENAL FAILURE CHRONIC
     Route: 033
     Dates: start: 20030522, end: 20051031
  2. DIANEAL [Concomitant]
     Indication: RENAL FAILURE CHRONIC
     Route: 033
     Dates: start: 19990301, end: 20040407
  3. DIANEAL [Concomitant]
     Route: 033
     Dates: start: 20040715

REACTIONS (1)
  - SCLEROSING ENCAPSULATING PERITONITIS [None]
